FAERS Safety Report 20376211 (Version 1)
Quarter: 2022Q1

REPORT INFORMATION
  Report Type: Spontaneous
  Country: US (occurrence: None)
  Receive Date: 20220125
  Receipt Date: 20220125
  Transmission Date: 20220423
  Serious: Yes (Other)
  Sender: FDA-Public Use
  Company Number: None

PATIENT
  Age: 63 Year
  Sex: Female
  Weight: 77.4 kg

DRUGS (1)
  1. FLUTICASONE PROPIONATE [Suspect]
     Active Substance: FLUTICASONE PROPIONATE
     Indication: Sinus congestion
     Dosage: OTHER STRENGTH : MCG;?OTHER QUANTITY : 2 SPRAY(S);?FREQUENCY : DAILY;?OTHER ROUTE : 2 SPRAYS INTO EA
     Route: 050
     Dates: start: 20220116, end: 20220119

REACTIONS (5)
  - Anxiety [None]
  - Depression [None]
  - Irritability [None]
  - Impaired driving ability [None]
  - Impaired work ability [None]

NARRATIVE: CASE EVENT DATE: 20220118
